FAERS Safety Report 6169292-5 (Version None)
Quarter: 2009Q2

REPORT INFORMATION
  Report Type: 
  Country: None (occurrence: None)
  Receive Date: 20090424
  Receipt Date: 20090410
  Transmission Date: 20091009
  Serious: Yes (Other)
  Sender: FDA-Public Use
  Company Number: 20090119

PATIENT
  Age: 58 Year
  Sex: Female
  Weight: 59.4212 kg

DRUGS (2)
  1. VENOFER [Suspect]
     Indication: IRON DEFICIENCY ANAEMIA
     Dosage: 200 MG INTRAVENOUS
     Route: 042
     Dates: start: 20090407, end: 20090407
  2. LEVAQUIN [Concomitant]

REACTIONS (4)
  - INJECTION SITE PAIN [None]
  - INJECTION SITE REACTION [None]
  - INJECTION SITE STREAKING [None]
  - PHLEBITIS [None]
